FAERS Safety Report 5537828-0 (Version None)
Quarter: 2007Q4

REPORT INFORMATION
  Report Type: 
  Country: None (occurrence: None)
  Receive Date: 20071207
  Receipt Date: 20071130
  Transmission Date: 20080405
  Serious: Yes (Other)
  Sender: FDA-Public Use
  Company Number: US-PFIZER INC-2007050574

PATIENT
  Sex: Male
  Weight: 81.6 kg

DRUGS (16)
  1. VIAGRA [Suspect]
     Indication: ERECTILE DYSFUNCTION
     Dates: start: 20020301, end: 20020426
  2. COLCHICINE [Concomitant]
  3. PREVACID [Concomitant]
  4. CIPROFLOXACIN [Concomitant]
  5. BIAXIN [Concomitant]
  6. VYTORIN [Concomitant]
  7. AMOXICILLIN [Concomitant]
  8. PROPOXYPHENE HYDROCHLORIDE [Concomitant]
  9. CEPHALEXIN [Concomitant]
  10. ZITHROMAX [Concomitant]
  11. LEVAQUIN [Concomitant]
  12. LANOXIN [Concomitant]
  13. PREDNISONE TAB [Concomitant]
  14. CELEBREX [Concomitant]
  15. METHYLPREDNISOLONE [Concomitant]
  16. ACETYLSALICYLIC ACID SRT [Concomitant]

REACTIONS (3)
  - BLINDNESS [None]
  - OPTIC ISCHAEMIC NEUROPATHY [None]
  - VISION BLURRED [None]
